FAERS Safety Report 10230371 (Version 1)
Quarter: 2014Q2

REPORT INFORMATION
  Report Type: Spontaneous
  Country: GB (occurrence: GB)
  Receive Date: 20140611
  Receipt Date: 20140611
  Transmission Date: 20141212
  Serious: Yes (Other)
  Sender: FDA-Public Use
  Company Number: GB-BAYER-2014-087354

PATIENT
  Age: 24 Year
  Sex: Female

DRUGS (1)
  1. MIRENA [Suspect]
     Dosage: 20 MCG/24HR, CONT
     Route: 015

REACTIONS (5)
  - Ruptured ectopic pregnancy [None]
  - Ectopic pregnancy with contraceptive device [None]
  - Drug ineffective [None]
  - Device dislocation [None]
  - Device dislocation [None]
